FAERS Safety Report 9492786 (Version 3)
Quarter: 2013Q3

REPORT INFORMATION
  Report Type: Spontaneous
  Country: US (occurrence: US)
  Receive Date: 20130830
  Receipt Date: 20130906
  Transmission Date: 20140515
  Serious: Yes (Other)
  Sender: FDA-Public Use
  Company Number: US-PFIZER INC-2013242920

PATIENT
  Age: 80 Year
  Sex: Female

DRUGS (2)
  1. PREPARATION H [Suspect]
     Dosage: UNK
  2. PREPARATION H HEMORRHOIDAL SUPPOSITORIES [Suspect]
     Indication: IRRITABLE BOWEL SYNDROME
     Dosage: UNK

REACTIONS (7)
  - Anal haemorrhage [Unknown]
  - Crohn^s disease [Unknown]
  - Feeling abnormal [Unknown]
  - Irritable bowel syndrome [Unknown]
  - Frequent bowel movements [Unknown]
  - Drug ineffective [Unknown]
  - Intentional drug misuse [Unknown]
